FAERS Safety Report 9602272 (Version 1)
Quarter: 2013Q4

REPORT INFORMATION
  Report Type: Spontaneous
  Country: JP (occurrence: JP)
  Receive Date: 20131007
  Receipt Date: 20131007
  Transmission Date: 20140711
  Serious: Yes (Hospitalization)
  Sender: FDA-Public Use
  Company Number: JP-PFIZER INC-2013281375

PATIENT
  Age: 78 Year
  Sex: Female
  Weight: 45.9 kg

DRUGS (10)
  1. LYRICA [Suspect]
     Indication: POST HERPETIC NEURALGIA
     Dosage: 75 MG, 2X/DAY
     Route: 048
     Dates: start: 201006, end: 20100805
  2. SELARA [Suspect]
     Indication: HYPERTENSION
     Dosage: 25 MG, 1X/DAY
     Route: 048
     Dates: end: 20100805
  3. GLIMICRON [Suspect]
     Indication: DIABETES MELLITUS
     Dosage: 20 MG, 1X/DAY
     Route: 048
     Dates: start: 20100601, end: 20100805
  4. EPADEL S [Concomitant]
  5. METHYCOBAL [Concomitant]
  6. GLAKAY [Concomitant]
  7. URSO [Concomitant]
  8. PURSENNID [Concomitant]
  9. OLMETEC [Concomitant]
     Dosage: UNK
     Dates: start: 20100601
  10. EQUA [Concomitant]
     Dosage: UNK
     Dates: end: 20100704

REACTIONS (5)
  - Rhabdomyolysis [Recovered/Resolved]
  - Dizziness [Unknown]
  - Hypoaesthesia [Unknown]
  - Aspartate aminotransferase increased [Recovering/Resolving]
  - Alanine aminotransferase increased [Recovering/Resolving]
